FAERS Safety Report 17025894 (Version 1)
Quarter: 2019Q4

REPORT INFORMATION
  Report Type: Spontaneous
  Country: US (occurrence: US)
  Receive Date: 20191112
  Receipt Date: 20191112
  Transmission Date: 20200122
  Serious: Yes (Other)
  Sender: FDA-Public Use
  Company Number: None

PATIENT
  Age: 33 Year
  Sex: Female
  Weight: 73.35 kg

DRUGS (1)
  1. DROSPIRENONE AND ETHINYL ESTRADIOL TABLETS [Suspect]
     Active Substance: DROSPIRENONE\ETHINYL ESTRADIOL
     Indication: CONTRACEPTION
     Dosage: ?          QUANTITY:28 TABLET(S);?
     Route: 048

REACTIONS (6)
  - Nausea [None]
  - Product substitution issue [None]
  - Back pain [None]
  - Dysmenorrhoea [None]
  - Presyncope [None]
  - Dizziness [None]

NARRATIVE: CASE EVENT DATE: 20191031
